FAERS Safety Report 23467426 (Version 5)
Quarter: 2024Q1

REPORT INFORMATION
  Report Type: Report from Study
  Country: CA (occurrence: CA)
  Receive Date: 20240201
  Receipt Date: 20240222
  Transmission Date: 20240410
  Serious: Yes (Other)
  Sender: FDA-Public Use
  Company Number: CA-JNJFOC-20230218430

PATIENT
  Age: 20 Year
  Sex: Female

DRUGS (3)
  1. REMICADE [Suspect]
     Active Substance: INFLIXIMAB
     Indication: Crohn^s disease
     Dosage: EXPIRY: 31-AUG-2025?EXPIRATION DATE 30-SEP-2025; EXPIRY DATE: 28-FEB-2026
     Route: 041
     Dates: start: 20200720, end: 20240109
  2. REMICADE [Suspect]
     Active Substance: INFLIXIMAB
     Dosage: ON 25-JUL-2023, RECEIVED 37TH INFLIXIMAB, RECOMBINANT INFUSION OF 600 MG AND PARTIAL HARVEY BRADSHAW
     Route: 041
     Dates: end: 20240109
  3. REMICADE [Suspect]
     Active Substance: INFLIXIMAB
     Route: 041
     Dates: start: 20200727, end: 20240109

REACTIONS (10)
  - Joint swelling [Not Recovered/Not Resolved]
  - Crohn^s disease [Not Recovered/Not Resolved]
  - Arthralgia [Not Recovered/Not Resolved]
  - Peripheral swelling [Not Recovered/Not Resolved]
  - Gait disturbance [Unknown]
  - Erythema [Unknown]
  - Pain of skin [Not Recovered/Not Resolved]
  - Influenza [Unknown]
  - Furuncle [Not Recovered/Not Resolved]
  - Abscess [Unknown]

NARRATIVE: CASE EVENT DATE: 20230124
